FAERS Safety Report 23142203 (Version 2)
Quarter: 2023Q4

REPORT INFORMATION
  Report Type: Spontaneous
  Country: US (occurrence: US)
  Receive Date: 20231103
  Receipt Date: 20231128
  Transmission Date: 20240110
  Serious: No
  Sender: FDA-Public Use
  Company Number: US-MYOVANT SCIENCES GMBH-2023MYSCI0900021

PATIENT
  Sex: Male

DRUGS (6)
  1. ORGOVYX [Suspect]
     Active Substance: RELUGOLIX
     Indication: Prostate cancer
     Dosage: 120 MILLIGRAM, QD
     Route: 065
     Dates: start: 20210905
  2. CEFADROXIL [Concomitant]
     Active Substance: CEFADROXIL
     Indication: Antibiotic therapy
     Dosage: 500 MILLIGRAM, BID
     Route: 065
     Dates: start: 20130905
  3. ELIQUIS [Concomitant]
     Active Substance: APIXABAN
     Indication: Coronary arterial stent insertion
     Dosage: 5 MILLIGRAM, BID
     Route: 065
     Dates: start: 20130905
  4. ALLOPURINOL [Concomitant]
     Active Substance: ALLOPURINOL
     Indication: Gout
     Dosage: 1 PER QD
     Route: 065
     Dates: start: 20130905
  5. METOPROLOL [Concomitant]
     Active Substance: METOPROLOL
     Indication: Heart rate abnormal
     Dosage: 25 MILLIGRAM, QD
     Route: 065
     Dates: start: 20130905
  6. EZETIMIBE [Concomitant]
     Active Substance: EZETIMIBE
     Indication: Blood cholesterol increased
     Dosage: 10 MILLIGRAM, QD
     Route: 065
     Dates: start: 20180905

REACTIONS (1)
  - Therapy interrupted [Not Recovered/Not Resolved]
